FAERS Safety Report 5128782-4 (Version None)
Quarter: 2006Q4

REPORT INFORMATION
  Report Type: 
  Country: None (occurrence: None)
  Receive Date: 20061017
  Receipt Date: 20061011
  Transmission Date: 20070319
  Serious: Yes (Death)
  Sender: FDA-Public Use
  Company Number: US-BRISTOL-MYERS SQUIBB COMPANY-13538244

PATIENT
  Age: 68 Year
  Sex: Male

DRUGS (5)
  1. ORENCIA [Suspect]
     Indication: RHEUMATOID ARTHRITIS
     Route: 042
     Dates: start: 20060713, end: 20060907
  2. REMICADE [Concomitant]
  3. PLAQUENIL [Concomitant]
  4. PREDNISONE TAB [Concomitant]
  5. GOLD [Concomitant]

REACTIONS (1)
  - DEATH [None]
